FAERS Safety Report 11093453 (Version 1)
Quarter: 2015Q2

REPORT INFORMATION
  Report Type: Spontaneous
  Country: US (occurrence: None)
  Receive Date: 20150428
  Receipt Date: 20150428
  Transmission Date: 20150821
  Serious: Yes (Hospitalization, Other)
  Sender: FDA-Public Use
  Company Number: PHEH2014US016912

PATIENT
  Sex: Female

DRUGS (4)
  1. GILENYA [Suspect]
     Active Substance: FINGOLIMOD HYDROCHLORIDE
     Route: 048
  2. SPIRIVA (TIOTROPIUM BROMIDE) [Concomitant]
  3. LISINOPRIL. [Concomitant]
     Active Substance: LISINOPRIL
  4. VENTOLIN (GUALIFENESIN, SALBUTAMOL SULFATE) [Concomitant]

REACTIONS (3)
  - Blood pressure increased [None]
  - Kidney infection [None]
  - Pneumonia [None]
